FAERS Safety Report 10005015 (Version 1)
Quarter: 2014Q1

REPORT INFORMATION
  Report Type: Spontaneous
  Country: US (occurrence: US)
  Receive Date: 20140312
  Receipt Date: 20140312
  Transmission Date: 20141002
  Serious: No
  Sender: FDA-Public Use
  Company Number: US-INCYTE CORPORATION-2013IN003117

PATIENT
  Age: 88 Year
  Sex: Male

DRUGS (7)
  1. JAKAFI [Suspect]
     Indication: MYELODYSPLASTIC SYNDROME
     Dosage: 5 MG, QD
     Route: 048
     Dates: start: 20131101
  2. SYMBICORT [Concomitant]
  3. BUMEX [Concomitant]
  4. LOPERAMIDE [Concomitant]
  5. METAZOLINE [Concomitant]
  6. METOPROLOL [Concomitant]
  7. PREVACID [Concomitant]

REACTIONS (1)
  - Weight decreased [Unknown]
